FAERS Safety Report 12262354 (Version 1)
Quarter: 2016Q2

REPORT INFORMATION
  Report Type: Spontaneous
  Country: US (occurrence: US)
  Receive Date: 20160413
  Receipt Date: 20160413
  Transmission Date: 20160815
  Serious: No
  Sender: FDA-Public Use
  Company Number: US-009507513-1603USA011956

PATIENT
  Age: 56 Year
  Sex: Male
  Weight: 55 kg

DRUGS (2)
  1. ERBITUX [Concomitant]
     Active Substance: CETUXIMAB
     Dosage: UNK
  2. KEYTRUDA [Suspect]
     Active Substance: PEMBROLIZUMAB
     Indication: LUNG NEOPLASM MALIGNANT
     Dosage: 110 MG (DOSE BASED ON PATIENT^S BODY WEIGHT PER 2MG/KG), ONCE EVERY 3 WEEKS/I.V. OVER 30 MINUTES
     Route: 042
     Dates: start: 20150924

REACTIONS (1)
  - Rash [Unknown]
